FAERS Safety Report 6544176-9 (Version None)
Quarter: 2010Q1

REPORT INFORMATION
  Report Type: 
  Country: None (occurrence: None)
  Receive Date: 20100119
  Receipt Date: 20100119
  Transmission Date: 20100710
  Serious: No
  Sender: FDA-Public Use
  Company Number: None

PATIENT
  Age: 52 Year
  Sex: Male
  Weight: 83.9154 kg

DRUGS (1)
  1. ROLAIDS MULTI-SYMPTOM 100CT CHEWABLE TABLETS MCNEIL CONSUMER HEALTH CA [Suspect]
     Indication: DYSPEPSIA
     Dosage: 2 TABLETS ONCE PER DAY PO
     Route: 048
     Dates: start: 20100109, end: 20100114

REACTIONS (3)
  - ABDOMINAL PAIN [None]
  - DIARRHOEA [None]
  - PRODUCT QUALITY ISSUE [None]
